FAERS Safety Report 13099596 (Version 1)
Quarter: 2017Q1

REPORT INFORMATION
  Report Type: Report from Study
  Country: US (occurrence: US)
  Receive Date: 20170109
  Receipt Date: 20170109
  Transmission Date: 20170428
  Serious: Yes (Other)
  Sender: FDA-Public Use
  Company Number: US-ROCHE-1876753

PATIENT
  Age: 80 Year
  Sex: Female

DRUGS (1)
  1. LUCENTIS [Suspect]
     Active Substance: RANIBIZUMAB
     Indication: MACULAR DEGENERATION
     Dosage: ONGOING-NO
     Route: 050
     Dates: end: 20160928

REACTIONS (2)
  - Blindness unilateral [Not Recovered/Not Resolved]
  - Eye infection [Recovered/Resolved]

NARRATIVE: CASE EVENT DATE: 20160930
